FAERS Safety Report 4333738-5 (Version None)
Quarter: 2004Q2

REPORT INFORMATION
  Report Type: 
  Country: None (occurrence: None)
  Receive Date: 20040402
  Receipt Date: 20040325
  Transmission Date: 20050107
  Serious: Yes (Hospitalization)
  Sender: FDA-Public Use
  Company Number: US-JNJFOC-20040305982

PATIENT
  Age: 49 Year
  Sex: Male

DRUGS (5)
  1. DURAGESIC [Suspect]
     Indication: PAIN
     Dosage: 25 UG/HR, 1 IN 72 HOUR, TRANSDERMAL
     Route: 062
     Dates: start: 20030901
  2. VALIUM [Concomitant]
  3. ZOCOR [Concomitant]
  4. ZETIA (ALL OTHER NON-THERAPEUTIC PRODUCTS) [Concomitant]
  5. COZAAR [Concomitant]

REACTIONS (4)
  - RASH ERYTHEMATOUS [None]
  - RASH GENERALISED [None]
  - VIRAL INFECTION [None]
  - VOMITING [None]
